FAERS Safety Report 4964594-X (Version None)
Quarter: 2006Q2

REPORT INFORMATION
  Report Type: 
  Country: None (occurrence: None)
  Receive Date: 20060406
  Receipt Date: 20060315
  Transmission Date: 20061013
  Serious: Yes (Hospitalization)
  Sender: FDA-Public Use
  Company Number: JP-MERCK-0603USA03019

PATIENT
  Age: 44 Year
  Sex: Female

DRUGS (3)
  1. PEPCID RPD [Suspect]
     Route: 048
     Dates: start: 20060224, end: 20060315
  2. MARZULENE-S [Concomitant]
     Route: 048
     Dates: start: 20060224
  3. ASPIRIN [Concomitant]
     Route: 048
     Dates: start: 20060309

REACTIONS (2)
  - CHEST DISCOMFORT [None]
  - HYPOGLYCAEMIA [None]
